FAERS Safety Report 18179856 (Version 3)
Quarter: 2020Q3

REPORT INFORMATION
  Report Type: Spontaneous
  Country: US (occurrence: US)
  Receive Date: 20200821
  Receipt Date: 20200917
  Transmission Date: 20201103
  Serious: Yes (Hospitalization)
  Sender: FDA-Public Use
  Company Number: US-PFIZER INC-2020321216

PATIENT
  Sex: Female

DRUGS (2)
  1. PHENYTOIN. [Suspect]
     Active Substance: PHENYTOIN
     Indication: SEIZURE PROPHYLAXIS
     Dosage: UNK
  2. CAPECITABINE. [Interacting]
     Active Substance: CAPECITABINE
     Indication: BREAST CANCER STAGE III
     Dosage: UNK

REACTIONS (4)
  - Dyskinesia [Recovering/Resolving]
  - Confusional state [Recovering/Resolving]
  - Drug interaction [Unknown]
  - Toxicity to various agents [Recovering/Resolving]
